FAERS Safety Report 7225794-1 (Version None)
Quarter: 2011Q1

REPORT INFORMATION
  Report Type: 
  Country: None (occurrence: None)
  Receive Date: 20110113
  Receipt Date: 20110111
  Transmission Date: 20110831
  Serious: Yes (Other)
  Sender: FDA-Public Use
  Company Number: US-PFIZER INC-2011008703

PATIENT
  Sex: Female

DRUGS (8)
  1. PROGESTERONE [Suspect]
     Indication: HORMONE REPLACEMENT THERAPY
  2. MEDROXYPROGESTERONE ACETATE [Suspect]
  3. CYCRIN [Suspect]
  4. PROVERA [Suspect]
     Indication: HORMONE REPLACEMENT THERAPY
     Dosage: 100 MG, UNK
  5. TRIEST [Suspect]
     Indication: CARDIAC DISORDER
  6. PREMARIN [Suspect]
     Indication: HORMONE REPLACEMENT THERAPY
     Dosage: UNK
     Dates: start: 19931101, end: 19940601
  7. TRIEST [Suspect]
     Indication: OSTEOPOROSIS
     Dosage: UNK
     Dates: start: 19991001, end: 20020801
  8. PREMPRO [Suspect]
     Indication: HORMONE REPLACEMENT THERAPY
     Dosage: 0.625/5MG
     Dates: start: 19990101, end: 19991001

REACTIONS (2)
  - BOWEN'S DISEASE [None]
  - BREAST CANCER [None]
